FAERS Safety Report 26061478 (Version 2)
Quarter: 2025Q4

REPORT INFORMATION
  Report Type: Spontaneous
  Country: US (occurrence: US)
  Receive Date: 20251118
  Receipt Date: 20251205
  Transmission Date: 20260118
  Serious: Yes (Other)
  Sender: NOVO NORDISK
  Company Number: US-NOVOPROD-1439215

PATIENT
  Age: 70 Year
  Sex: Female

DRUGS (3)
  1. INSULIN ASPART [Suspect]
     Active Substance: INSULIN ASPART
     Indication: Type 2 diabetes mellitus
     Dosage: 3 IU, BEFORE EACH MEAL
     Dates: start: 20250318, end: 20250424
  2. NOVOLIN N [Suspect]
     Active Substance: INSULIN HUMAN
     Indication: Type 2 diabetes mellitus
     Dosage: 15 IU
  3. NOVOLIN N [Suspect]
     Active Substance: INSULIN HUMAN
     Dosage: 27 IU
     Dates: start: 20250521

REACTIONS (1)
  - Blood glucose increased [Not Recovered/Not Resolved]

NARRATIVE: CASE EVENT DATE: 20250429
